FAERS Safety Report 8019027 (Version 2)
Quarter: 2014Q2

REPORT INFORMATION
  Report Type: Report from Study
  Country: US (occurrence: US)
  Receive Date: 20110701
  Receipt Date: 20140523
  Transmission Date: 20141212
  Serious: Yes (Hospitalization)
  Sender: FDA-Public Use
  Company Number: PHHO2011US10995

PATIENT
  Age: 78 Year
  Sex: Male
  Weight: 69.39 kg

DRUGS (6)
  1. TASIGNA [Suspect]
     Indication: CHRONIC MYELOID LEUKAEMIA
     Dosage: 300 MG, BID
     Route: 048
     Dates: start: 20110531, end: 20110620
  2. LOPRESSOR [Concomitant]
     Indication: HYPERTENSION
  3. IMDUR [Concomitant]
     Indication: CORONARY ARTERY DISEASE
  4. NORTRIPTYLINE [Concomitant]
     Indication: DEPRESSION
  5. SIMVASTATIN [Concomitant]
     Indication: HYPERLIPIDAEMIA
  6. ASPIRIN [Concomitant]
     Indication: CORONARY ARTERY DISEASE

REACTIONS (1)
  - Myocardial infarction [Not Recovered/Not Resolved]
